FAERS Safety Report 18913520 (Version 1)
Quarter: 2021Q1

REPORT INFORMATION
  Report Type: Spontaneous
  Country: US (occurrence: US)
  Receive Date: 20210219
  Receipt Date: 20210219
  Transmission Date: 20210420
  Serious: No
  Sender: FDA-Public Use
  Company Number: US-009507513-2102USA007196

PATIENT
  Age: 31 Year
  Sex: Female
  Weight: 63.04 kg

DRUGS (1)
  1. NEXPLANON [Suspect]
     Active Substance: ETONOGESTREL
     Indication: CONTRACEPTION
     Dosage: 68 MG; LEFT ARM
     Route: 059
     Dates: start: 2017, end: 20210216

REACTIONS (5)
  - Complication of device removal [Recovered/Resolved]
  - Feeling abnormal [Unknown]
  - Device kink [Recovered/Resolved]
  - Incorrect product administration duration [Unknown]
  - Device breakage [Recovered/Resolved]

NARRATIVE: CASE EVENT DATE: 2020
